FAERS Safety Report 6762415-6 (Version None)
Quarter: 2010Q2

REPORT INFORMATION
  Report Type: 
  Country: None (occurrence: None)
  Receive Date: 20100609
  Receipt Date: 20100601
  Transmission Date: 20101027
  Serious: Yes (Other)
  Sender: FDA-Public Use
  Company Number: US-ROCHE-708064

PATIENT
  Sex: Female

DRUGS (2)
  1. BEVACIZUMAB [Suspect]
     Indication: MALIGNANT GLIOMA
     Dosage: FREQUENCY: OVER 90-30 MIN ON DAYS 1 AND 15.  CYCLE: 4 WEEKS.  LAST DOSE PRIOR TO SAE: 04 FEB 2010.
     Route: 042
     Dates: start: 20091221, end: 20100217
  2. IRINOTECAN HCL [Suspect]
     Indication: MALIGNANT GLIOMA
     Dosage: DOSE AND FREQUENCY: 125-150 MG/ ME OVER 90 MIN EVERY 2 WEEKLY STARTING ON DAY 15.
     Route: 042
     Dates: start: 20091221, end: 20100217

REACTIONS (1)
  - BLOOD ALBUMIN DECREASED [None]
